FAERS Safety Report 8789830 (Version 4)
Quarter: 2014Q3

REPORT INFORMATION
  Report Type: Spontaneous
  Country: US (occurrence: US)
  Receive Date: 20120917
  Receipt Date: 20140821
  Transmission Date: 20150326
  Serious: Yes (Hospitalization, Other)
  Sender: FDA-Public Use
  Company Number: US-ASTRAZENECA-2012SE26564

PATIENT
  Age: 88 Year
  Sex: Male
  Weight: 90.3 kg

DRUGS (9)
  1. APITOL [Concomitant]
     Indication: CONVULSION
     Route: 048
  2. BABY ASPIRIN [Concomitant]
     Active Substance: ASPIRIN
     Indication: ANTICOAGULANT THERAPY
     Route: 048
  3. CRESTOR [Suspect]
     Active Substance: ROSUVASTATIN CALCIUM
     Indication: BLOOD CHOLESTEROL INCREASED
     Route: 048
     Dates: start: 20140309
  4. BRIMONODINE TARTRATE [Concomitant]
     Indication: GLAUCOMA
     Dosage: 1 DROP EACH EYE BID
     Route: 050
  5. CRESTOR [Suspect]
     Active Substance: ROSUVASTATIN CALCIUM
     Indication: BLOOD CHOLESTEROL INCREASED
     Route: 048
     Dates: start: 2012, end: 20140308
  6. CRESTOR [Suspect]
     Active Substance: ROSUVASTATIN CALCIUM
     Indication: BLOOD CHOLESTEROL INCREASED
     Dosage: 10 MG WAS UNSUCCESSFULLY SPLIT TO HALF
     Route: 048
     Dates: start: 201407
  7. CRESTOR [Suspect]
     Active Substance: ROSUVASTATIN CALCIUM
     Indication: BLOOD CHOLESTEROL INCREASED
     Route: 048
     Dates: start: 2012
  8. APITOL [Concomitant]
     Indication: CONVULSION
     Route: 048
  9. ZETIA [Concomitant]
     Active Substance: EZETIMIBE
     Indication: BLOOD CHOLESTEROL ABNORMAL
     Route: 048
     Dates: start: 201403, end: 2014

REACTIONS (9)
  - Transient ischaemic attack [Unknown]
  - Off label use [Recovered/Resolved]
  - Prostatomegaly [Unknown]
  - Hypoaesthesia [Unknown]
  - Monoparesis [Unknown]
  - Body height decreased [Not Recovered/Not Resolved]
  - Carotid artery stenosis [Unknown]
  - Sleep study abnormal [Unknown]
  - Memory impairment [Unknown]

NARRATIVE: CASE EVENT DATE: 201203
